FAERS Safety Report 5500654-2 (Version None)
Quarter: 2007Q4

REPORT INFORMATION
  Report Type: 
  Country: None (occurrence: None)
  Receive Date: 20071029
  Receipt Date: 20071024
  Transmission Date: 20080405
  Serious: Yes (Other)
  Sender: FDA-Public Use
  Company Number: A0689507A

PATIENT

DRUGS (2)
  1. ALLI [Suspect]
  2. INSULIN [Concomitant]

REACTIONS (3)
  - FAECAL INCONTINENCE [None]
  - GASTROINTESTINAL DISORDER [None]
  - WEIGHT INCREASED [None]
